FAERS Safety Report 12643928 (Version 1)
Quarter: 2016Q3

REPORT INFORMATION
  Report Type: Spontaneous
  Country: US (occurrence: US)
  Receive Date: 20160811
  Receipt Date: 20160811
  Transmission Date: 20161109
  Serious: No
  Sender: FDA-Public Use
  Company Number: US-BAYER-2016-155256

PATIENT
  Age: 15 Year
  Sex: Male
  Weight: 190 kg

DRUGS (2)
  1. MIRALAX [Suspect]
     Active Substance: POLYETHYLENE GLYCOL 3350
     Indication: COLONOSCOPY
     Dosage: 6 DF, QD
     Route: 048
     Dates: start: 20160808, end: 20160809
  2. MIRALAX [Suspect]
     Active Substance: POLYETHYLENE GLYCOL 3350
     Indication: COLONOSCOPY
     Dosage: 9 DF, ONCE
     Route: 048
     Dates: start: 20160810, end: 20160810

REACTIONS (1)
  - Circumstance or information capable of leading to medication error [None]
